FAERS Safety Report 9666561 (Version 1)
Quarter: 2013Q4

REPORT INFORMATION
  Report Type: Spontaneous
  Country: DE (occurrence: DE)
  Receive Date: 20131104
  Receipt Date: 20131104
  Transmission Date: 20140711
  Serious: Yes (Other)
  Sender: FDA-Public Use
  Company Number: DE-009507513-1310DEU015404

PATIENT
  Age: 80 Year
  Sex: Female

DRUGS (7)
  1. TAFLUPROST [Suspect]
     Indication: GLAUCOMA
     Dosage: 1 DROP, QD
     Route: 047
  2. CLONIDINE [Concomitant]
  3. KINZALKOMB [Concomitant]
  4. AMLODIPINE [Concomitant]
  5. BISOPROLOL [Concomitant]
  6. SIMVASTATIN [Concomitant]
  7. EUTHYROX [Concomitant]

REACTIONS (1)
  - Renal failure acute [Recovered/Resolved]
